FAERS Safety Report 4557849-4 (Version None)
Quarter: 2005Q1

REPORT INFORMATION
  Report Type: 
  Country: None (occurrence: None)
  Receive Date: 20050103
  Receipt Date: 20040917
  Transmission Date: 20050727
  Serious: Yes (Other)
  Sender: FDA-Public Use
  Company Number: 2004UW19491

PATIENT
  Age: 76 Year
  Sex: Female
  Weight: 68.9467 kg

DRUGS (7)
  1. CRESTOR [Suspect]
     Indication: BLOOD CHOLESTEROL INCREASED
     Dosage: 10 MG PO
     Route: 048
     Dates: start: 20040801
  2. PREVACID [Concomitant]
  3. TOPROL-XL [Concomitant]
  4. XANAX [Concomitant]
  5. LASIX [Concomitant]
  6. K-DUR 10 [Concomitant]
  7. ZESTRIL [Concomitant]

REACTIONS (2)
  - DEPRESSION [None]
  - NIGHTMARE [None]
